FAERS Safety Report 7463793-5 (Version None)
Quarter: 2011Q2

REPORT INFORMATION
  Report Type: 
  Country: None (occurrence: None)
  Receive Date: 20110428
  Receipt Date: 20110419
  Transmission Date: 20111010
  Serious: Yes (Other)
  Sender: FDA-Public Use
  Company Number: 893856

PATIENT
  Age: 44 Year
  Sex: Female

DRUGS (3)
  1. TRASTUZUMAB [Suspect]
     Indication: BREAST CANCER STAGE III
  2. DOCETAXEL [Suspect]
     Indication: BREAST CANCER STAGE III
  3. EPIRUBICIN HYDROCHLORIDE [Suspect]
     Indication: BREAST CANCER STAGE III

REACTIONS (7)
  - ASTHENIA [None]
  - NODULAR REGENERATIVE HYPERPLASIA [None]
  - BLOOD BILIRUBIN INCREASED [None]
  - ASPARTATE AMINOTRANSFERASE INCREASED [None]
  - ASCITES [None]
  - ALANINE AMINOTRANSFERASE INCREASED [None]
  - JAUNDICE [None]
